FAERS Safety Report 9276260 (Version 1)
Quarter: 2012Q4

REPORT INFORMATION
  Report Type: Spontaneous
  Country: ES (occurrence: None)
  Receive Date: 20121109
  Receipt Date: 20121109
  Transmission Date: 20130627
  Serious: Yes (Other)
  Sender: FDA-Public Use
  Company Number: 2012S1000080

PATIENT
  Age: 80 Year
  Sex: Female

DRUGS (7)
  1. CUBICIN (DAPTOMYCIN) [Suspect]
     Indication: BACTEREMIA
     Dates: start: 20110914, end: 20111007
  2. OMEPRAZOLE [Concomitant]
  3. DEXKETOPROFEN [Concomitant]
  4. METOCLOPRAMIDE [Concomitant]
  5. SIMETHICONE [Concomitant]
  6. ENOXAPARIN [Concomitant]
  7. ALMAGATE [Concomitant]

REACTIONS (1)
  - Convulsion [None]
